FAERS Safety Report 4401186-5 (Version None)
Quarter: 2004Q3

REPORT INFORMATION
  Report Type: 
  Country: None (occurrence: None)
  Receive Date: 20040907
  Receipt Date: 20031208
  Transmission Date: 20050211
  Serious: No
  Sender: FDA-Public Use
  Company Number: US-BRISTOL-MYERS SQUIBB COMPANY-12452876

PATIENT
  Age: 76 Year
  Sex: Female
  Weight: 91 kg

DRUGS (2)
  1. COUMADIN [Suspect]
     Indication: PROPHYLAXIS
     Dosage: 2.5MG, 2 TABLETS DAILY.
     Route: 048
  2. OTHERS (NOS) [Concomitant]

REACTIONS (1)
  - RASH GENERALISED [None]
